FAERS Safety Report 6142282-4 (Version None)
Quarter: 2009Q2

REPORT INFORMATION
  Report Type: 
  Country: None (occurrence: None)
  Receive Date: 20090402
  Receipt Date: 20090402
  Transmission Date: 20091009
  Serious: No
  Sender: FDA-Public Use
  Company Number: None

PATIENT
  Age: 88 Year
  Sex: Female
  Weight: 54.4316 kg

DRUGS (5)
  1. RAZADYNE [Suspect]
     Indication: DEMENTIA
     Dosage: 4 MG BID PO
     Route: 048
     Dates: start: 20090219
  2. LEVOTHROID [Concomitant]
  3. LIPITOR [Concomitant]
  4. CAPTOPRIL [Concomitant]
  5. FOSAMAX [Concomitant]

REACTIONS (1)
  - HEADACHE [None]
